FAERS Safety Report 6629548-6 (Version None)
Quarter: 2010Q1

REPORT INFORMATION
  Report Type: 
  Country: None (occurrence: None)
  Receive Date: 20100311
  Receipt Date: 20100225
  Transmission Date: 20100710
  Serious: Yes (Other)
  Sender: FDA-Public Use
  Company Number: US-ELI_LILLY_AND_COMPANY-US201003000546

PATIENT
  Sex: Female

DRUGS (7)
  1. FORTEO [Suspect]
     Dosage: 20 UG, DAILY (1/D)
  2. NEXIUM [Concomitant]
  3. SEROQUEL [Concomitant]
  4. HYDROCORTISONE [Concomitant]
  5. LEXAPRO [Concomitant]
  6. CORTISONE [Concomitant]
     Indication: PAIN
  7. LYRICA [Concomitant]
     Dosage: UNK, UNK

REACTIONS (4)
  - ADRENAL INSUFFICIENCY [None]
  - ANXIETY [None]
  - DRUG INTERACTION [None]
  - PAIN [None]
